FAERS Safety Report 20216887 (Version 1)
Quarter: 2021Q4

REPORT INFORMATION
  Report Type: Spontaneous
  Country: US (occurrence: None)
  Receive Date: 20211221
  Receipt Date: 20211221
  Transmission Date: 20220303
  Serious: Yes (Life-Threatening, Hospitalization)
  Sender: FDA-Public Use
  Company Number: None

PATIENT
  Age: 24 Year
  Sex: Female
  Weight: 54.43 kg

DRUGS (5)
  1. SKYLA [Suspect]
     Active Substance: LEVONORGESTREL
     Dates: start: 20181201, end: 20211110
  2. ZYRTEC [Concomitant]
     Active Substance: CETIRIZINE HYDROCHLORIDE
  3. VITAMINS [Concomitant]
     Active Substance: VITAMINS
  4. FIBER [Concomitant]
     Active Substance: PSYLLIUM HUSK
  5. MELATONIN [Concomitant]
     Active Substance: MELATONIN

REACTIONS (9)
  - Ectopic pregnancy with contraceptive device [None]
  - Maternal exposure during pregnancy [None]
  - Foetal exposure during pregnancy [None]
  - Mood swings [None]
  - Haemorrhage [None]
  - Weight increased [None]
  - Menstruation irregular [None]
  - Abortion of ectopic pregnancy [None]
  - Suspected product quality issue [None]

NARRATIVE: CASE EVENT DATE: 20211108
